FAERS Safety Report 13897498 (Version 1)
Quarter: 2017Q3

REPORT INFORMATION
  Report Type: Spontaneous
  Country: US (occurrence: US)
  Receive Date: 20170823
  Receipt Date: 20170823
  Transmission Date: 20171127
  Serious: Yes (Other)
  Sender: FDA-Public Use
  Company Number: US-SA-2017SA073479

PATIENT
  Age: 75 Year
  Sex: Male

DRUGS (3)
  1. MULTAQ [Suspect]
     Active Substance: DRONEDARONE
     Indication: VENTRICULAR EXTRASYSTOLES
     Route: 065
     Dates: start: 201608
  2. MULTAQ [Suspect]
     Active Substance: DRONEDARONE
     Indication: VENTRICULAR EXTRASYSTOLES
     Route: 065
  3. MULTAQ [Suspect]
     Active Substance: DRONEDARONE
     Indication: VENTRICULAR EXTRASYSTOLES
     Route: 065

REACTIONS (6)
  - Ventricular extrasystoles [Unknown]
  - Dizziness [Unknown]
  - Chest discomfort [Unknown]
  - Fatigue [Unknown]
  - Feeling abnormal [Unknown]
  - Bradycardia [Unknown]
